FAERS Safety Report 5385455-0 (Version None)
Quarter: 2007Q3

REPORT INFORMATION
  Report Type: 
  Country: None (occurrence: None)
  Receive Date: 20070712
  Receipt Date: 20070705
  Transmission Date: 20080115
  Serious: Yes (Hospitalization, Other)
  Sender: FDA-Public Use
  Company Number: DE-BAYER-200710759BVD

PATIENT
  Age: 49 Year
  Sex: Female
  Weight: 67 kg

DRUGS (8)
  1. SORAFENIB [Suspect]
     Indication: HEPATIC NEOPLASM MALIGNANT
     Route: 048
     Dates: start: 20070526, end: 20070612
  2. SORAFENIB [Suspect]
     Route: 048
     Dates: start: 20070621
  3. SORAFENIB [Suspect]
     Route: 048
     Dates: start: 20070501, end: 20070512
  4. FUROSEMIDE [Concomitant]
     Dosage: TOTAL DAILY DOSE: 80 MG  UNIT DOSE: 40 MG
     Route: 048
     Dates: start: 20070219
  5. SPIRONOLACTONE [Concomitant]
     Route: 048
     Dates: start: 20070219
  6. NOVAMINSULFON [Concomitant]
     Route: 048
     Dates: start: 20070312
  7. CISPLATIN [Concomitant]
     Route: 065
     Dates: start: 20050301, end: 20070401
  8. GEMCITABINE HCL [Concomitant]
     Route: 065
     Dates: start: 20050301, end: 20070401

REACTIONS (7)
  - AMNESIA [None]
  - CONFUSIONAL STATE [None]
  - DISORIENTATION [None]
  - DIZZINESS [None]
  - FATIGUE [None]
  - SWELLING FACE [None]
  - VOMITING [None]
